FAERS Safety Report 7701379-5 (Version None)
Quarter: 2011Q3

REPORT INFORMATION
  Report Type: 
  Country: None (occurrence: None)
  Receive Date: 20110822
  Receipt Date: 20110815
  Transmission Date: 20111222
  Serious: Yes (Other)
  Sender: FDA-Public Use
  Company Number: US-BAYER-201039302NA

PATIENT
  Age: 28 Year
  Sex: Female
  Weight: 90.703 kg

DRUGS (7)
  1. LISINOPRIL [Concomitant]
  2. ADVAIR DISKUS 100/50 [Concomitant]
  3. MIDRID [ISOMETHEPTENE MUCATE,PARACETAMOL] [Concomitant]
  4. YAZ [Suspect]
     Indication: MENSTRUATION IRREGULAR
     Dosage: UNK UNK, UNK
     Route: 048
     Dates: start: 20060601, end: 20090101
  5. ALBUTEROL SULFATE AUTOHALER [Concomitant]
  6. HYDROCHLOROTHIAZIDE [Concomitant]
  7. YASMIN [Suspect]
     Indication: MENSTRUATION IRREGULAR
     Dosage: UNK UNK, UNK
     Route: 048
     Dates: start: 20060601, end: 20090101

REACTIONS (1)
  - CHOLELITHIASIS [None]
